FAERS Safety Report 7483689-2 (Version None)
Quarter: 2011Q2

REPORT INFORMATION
  Report Type: 
  Country: None (occurrence: None)
  Receive Date: 20110513
  Receipt Date: 20110513
  Transmission Date: 20111010
  Serious: Yes (Hospitalization)
  Sender: FDA-Public Use
  Company Number: None

PATIENT
  Sex: Female
  Weight: 83 kg

DRUGS (1)
  1. CISPLATIN [Suspect]
     Dosage: 96 MG

REACTIONS (2)
  - DEHYDRATION [None]
  - HYPOPHAGIA [None]
